FAERS Safety Report 6574290-3 (Version None)
Quarter: 2010Q1

REPORT INFORMATION
  Report Type: 
  Country: None (occurrence: None)
  Receive Date: 20100127
  Receipt Date: 20100118
  Transmission Date: 20100710
  Serious: Yes (Hospitalization)
  Sender: FDA-Public Use
  Company Number: 2010021912

PATIENT
  Sex: Male
  Weight: 18.6 kg

DRUGS (5)
  1. HUMATE-P (ANTIHEMOPHILIC FACTOR (HUMAN) VWF, DRIED, PASTEURIZED) 1648 [Suspect]
     Indication: EPISTAXIS
     Dosage: 1648 IU, INTRAVENEOUS (NOT OTHERWISE SPECIFIED)
     Route: 042
     Dates: start: 20090804, end: 20090813
  2. HUMATE-P (ANTIHEMOPHILIC FACTOR (HUMAN) VWF, DRIED, PASTEURIZED) 1648 [Suspect]
     Indication: VON WILLEBRAND'S DISEASE
     Dosage: 1648 IU, INTRAVENEOUS (NOT OTHERWISE SPECIFIED)
     Route: 042
     Dates: start: 20090804, end: 20090813
  3. HUMATE-P (ANTIHEMPHILIC FACTOR (HUMAN) VMF, DRIED, PASTEURIZED) 1648 I [Suspect]
  4. FERROUS SULFATE TAB [Concomitant]
  5. FOLIC ACID [Concomitant]

REACTIONS (6)
  - BLOOD ALBUMIN DECREASED [None]
  - EOSINOPHIL PERCENTAGE INCREASED [None]
  - HAEMATOCRIT DECREASED [None]
  - HAEMOGLOBIN DECREASED [None]
  - SERUM SICKNESS [None]
  - TYPE III IMMUNE COMPLEX MEDIATED REACTION [None]
